FAERS Safety Report 17690677 (Version 3)
Quarter: 2020Q2

REPORT INFORMATION
  Report Type: Report from Study
  Country: US (occurrence: US)
  Receive Date: 20200421
  Receipt Date: 20200527
  Transmission Date: 20200714
  Serious: Yes (Death, Hospitalization)
  Sender: FDA-Public Use
  Company Number: US-ACTELION-A-NJ2020-204254

PATIENT
  Age: 72 Year
  Sex: Male

DRUGS (4)
  1. ELIQUIS [Concomitant]
     Active Substance: APIXABAN
     Dosage: 5 MG, BID
     Route: 048
     Dates: start: 20200322
  2. OPSUMIT [Suspect]
     Active Substance: MACITENTAN
     Indication: PULMONARY ARTERIAL HYPERTENSION
     Dosage: 10 MG, QD
     Route: 048
     Dates: start: 20200324, end: 20200326
  3. CORLANOR [Concomitant]
     Active Substance: IVABRADINE HYDROCHLORIDE
     Dosage: 5 MG, BID
     Route: 065
     Dates: start: 20200323
  4. MILRINONE [Concomitant]
     Active Substance: MILRINONE
     Dosage: 0.375 MG/KG, PER MIN
     Route: 042
     Dates: start: 20200327

REACTIONS (4)
  - Asthenia [Unknown]
  - Pulmonary arterial hypertension [Fatal]
  - Fluid retention [Unknown]
  - Right ventricular failure [Fatal]

NARRATIVE: CASE EVENT DATE: 202003
